FAERS Safety Report 11937949 (Version 1)
Quarter: 2016Q1

REPORT INFORMATION
  Report Type: Spontaneous
  Country: US (occurrence: None)
  Receive Date: 20160120
  Receipt Date: 20160120
  Transmission Date: 20160526
  Serious: Yes (Death)
  Sender: FDA-Public Use
  Company Number: None

PATIENT
  Age: 18 Month
  Sex: Male
  Weight: 3.95 kg

DRUGS (1)
  1. VORINOSTAT [Suspect]
     Active Substance: VORINOSTAT
     Indication: NEUROBLASTOMA

REACTIONS (4)
  - Acidosis [None]
  - Ventricular tachycardia [None]
  - Arrhythmia [None]
  - Tumour compression [None]

NARRATIVE: CASE EVENT DATE: 20160104
